FAERS Safety Report 9141045 (Version 4)
Quarter: 2013Q3

REPORT INFORMATION
  Report Type: Spontaneous
  Country: US (occurrence: US)
  Receive Date: 20130305
  Receipt Date: 20130829
  Transmission Date: 20140515
  Serious: Yes (Death, Hospitalization)
  Sender: FDA-Public Use
  Company Number: US-B.I. PHARMACEUTICALS,INC./RIDGEFIELD-2013-BI-05472BP

PATIENT
  Age: 81 Year
  Sex: Female
  Weight: 45.36 kg

DRUGS (10)
  1. PRADAXA [Suspect]
     Indication: ATRIAL FIBRILLATION
     Dosage: 300 MG
     Route: 048
     Dates: start: 20110311, end: 20110511
  2. VERAPAMIL [Concomitant]
     Dosage: 240 NR
     Route: 048
  3. LOSARTAN [Concomitant]
     Dosage: 50 NR
     Route: 048
  4. XANAX [Concomitant]
  5. CELEBREX [Concomitant]
     Dosage: 200 NR
     Route: 048
  6. COREG [Concomitant]
     Dosage: 12.5 NR
  7. HYDROCHLOROTHIAZIDE [Concomitant]
     Dosage: 25 MG
     Route: 048
  8. LEVOTHYROXINE [Concomitant]
     Dosage: 0.075 NR
  9. PAROXETINE [Concomitant]
     Dosage: 10 MG
     Route: 048
  10. ZOLPIDEM-CR [Concomitant]
     Dosage: 6.25 NR
     Route: 048

REACTIONS (1)
  - Basal ganglia haemorrhage [Fatal]
